FAERS Safety Report 9754519 (Version 7)
Quarter: 2014Q2

REPORT INFORMATION
  Report Type: Spontaneous
  Country: GB (occurrence: GB)
  Receive Date: 20131213
  Receipt Date: 20140424
  Transmission Date: 20141212
  Serious: Yes (Death, Other)
  Sender: FDA-Public Use
  Company Number: GB-PFIZER INC-2013356229

PATIENT
  Age: 73 Year
  Sex: Male

DRUGS (6)
  1. RAMIPRIL [Suspect]
     Indication: MYOCARDIAL ISCHAEMIA
     Dosage: UNK
     Route: 048
  2. BISOPROLOL FUMARATE [Suspect]
     Indication: MYOCARDIAL ISCHAEMIA
     Dosage: UNK
     Route: 048
  3. TICAGRELOR [Suspect]
     Indication: CORONARY ARTERY DISEASE
     Dosage: 90 MG, TWICE A DAY
     Route: 048
     Dates: start: 20110608, end: 20131104
  4. ASA [Concomitant]
     Indication: MYOCARDIAL ISCHAEMIA
     Dosage: 75 MG ONCE A DAY
     Route: 048
  5. ATORVASTATIN [Concomitant]
     Indication: MYOCARDIAL ISCHAEMIA
     Route: 048
  6. GLYCERYL TRINITRATE [Concomitant]
     Indication: MYOCARDIAL ISCHAEMIA
     Route: 048

REACTIONS (4)
  - Completed suicide [Fatal]
  - Haemorrhage [Fatal]
  - Laceration [Fatal]
  - Shock [Fatal]
